FAERS Safety Report 15763816 (Version 1)
Quarter: 2018Q4

REPORT INFORMATION
  Report Type: Report from Study
  Country: CA (occurrence: CA)
  Receive Date: 20181227
  Receipt Date: 20181227
  Transmission Date: 20190205
  Serious: Yes (Hospitalization)
  Sender: FDA-Public Use
  Company Number: CA-ROCHE-2231501

PATIENT
  Age: 50 Year
  Sex: Female
  Weight: 70 kg

DRUGS (3)
  1. CEFTRIAXONE. [Concomitant]
     Active Substance: CEFTRIAXONE
     Dosage: 2GR
     Route: 065
     Dates: start: 20181206, end: 20181210
  2. CEFADROXIL. [Concomitant]
     Active Substance: CEFADROXIL
     Route: 065
     Dates: start: 20181210
  3. OCRELIZUMAB. [Suspect]
     Active Substance: OCRELIZUMAB
     Indication: RELAPSING-REMITTING MULTIPLE SCLEROSIS
     Dosage: MOST RECENT DOSE PRIOR TO SERIOUS ADVERSE EVENT (SAE) RECEIVED ON 27/JUN/2018?INITIAL DOSE OF TWO 30
     Route: 042
     Dates: start: 20170130

REACTIONS (1)
  - Pyelonephritis [Not Recovered/Not Resolved]

NARRATIVE: CASE EVENT DATE: 20181204
